APPROVED DRUG PRODUCT: DOCETAXEL
Active Ingredient: DOCETAXEL
Strength: 80MG/2ML (40MG/ML)
Dosage Form/Route: INJECTABLE;INJECTION
Application: N022312 | Product #002
Applicant: APOTEX INC
Approved: Jan 11, 2012 | RLD: No | RS: No | Type: DISCN